FAERS Safety Report 6877150-3 (Version None)
Quarter: 2010Q3

REPORT INFORMATION
  Report Type: 
  Country: None (occurrence: None)
  Receive Date: 20100727
  Receipt Date: 20100727
  Transmission Date: 20110219
  Serious: No
  Sender: FDA-Public Use
  Company Number: None

PATIENT
  Age: 47 Year
  Sex: Male
  Weight: 106.5953 kg

DRUGS (1)
  1. TREANDA [Suspect]
     Indication: NODAL MARGINAL ZONE B-CELL LYMPHOMA
     Dosage: 260 MG DAYS 1-2 IV DRIP
     Route: 041
     Dates: start: 20100511, end: 20100512

REACTIONS (7)
  - FALL [None]
  - GASTRIC DISORDER [None]
  - GAZE PALSY [None]
  - LOSS OF CONSCIOUSNESS [None]
  - NAUSEA [None]
  - UNRESPONSIVE TO STIMULI [None]
  - URINARY INCONTINENCE [None]
